FAERS Safety Report 9234932 (Version 3)
Quarter: 2017Q1

REPORT INFORMATION
  Report Type: Spontaneous
  Country: FI (occurrence: FI)
  Receive Date: 20130416
  Receipt Date: 20170111
  Transmission Date: 20170429
  Serious: Yes (Death, Life-Threatening, Hospitalization, Disabling)
  Sender: FDA-Public Use
  Company Number: FI-TEVA-397887USA

PATIENT
  Age: 82 Year
  Sex: Male

DRUGS (7)
  1. CARDACE [Concomitant]
     Active Substance: RAMIPRIL
     Dosage: 2.5 MILLIGRAM DAILY;
     Route: 048
  2. FURESIS [Concomitant]
     Active Substance: FUROSEMIDE
     Dosage: 40 MILLIGRAM DAILY;
     Route: 048
  3. MABTHERA [Suspect]
     Active Substance: RITUXIMAB
     Indication: B-CELL LYMPHOMA
     Route: 042
     Dates: start: 200407, end: 201208
  4. TREANDA [Suspect]
     Active Substance: BENDAMUSTINE HYDROCHLORIDE
     Indication: B-CELL LYMPHOMA
     Route: 042
     Dates: start: 201203, end: 201208
  5. KALCIPOS-D [Concomitant]
     Active Substance: CALCIUM CARBONATE\CHOLECALCIFEROL
     Dosage: 400 IU
     Route: 048
  6. ORMOX [Concomitant]
     Dosage: 10 MILLIGRAM DAILY;
     Route: 048
  7. KLEXANE [Concomitant]
     Active Substance: ENOXAPARIN
     Dosage: 2 X 60 MG
     Route: 058

REACTIONS (1)
  - Progressive multifocal leukoencephalopathy [Fatal]

NARRATIVE: CASE EVENT DATE: 20130313
